FAERS Safety Report 5208345-2 (Version None)
Quarter: 2007Q1

REPORT INFORMATION
  Report Type: 
  Country: None (occurrence: None)
  Receive Date: 20070110
  Receipt Date: 20070110
  Transmission Date: 20070707
  Serious: Yes (Hospitalization)
  Sender: FDA-Public Use
  Company Number: None

PATIENT
  Age: 94 Year
  Sex: Male
  Weight: 56.246 kg

DRUGS (1)
  1. CLOPIDOGREL [Suspect]
     Indication: VASCULAR INSUFFICIENCY
     Dosage: 75 MG DAILY PO
     Route: 048

REACTIONS (4)
  - CARDIAC FAILURE CONGESTIVE [None]
  - CELLULITIS [None]
  - GRANULOCYTOPENIA [None]
  - VASCULAR INSUFFICIENCY [None]
